FAERS Safety Report 8611860-2 (Version None)
Quarter: 2012Q3

REPORT INFORMATION
  Report Type: 
  Country: None (occurrence: None)
  Receive Date: 20120822
  Receipt Date: 20120810
  Transmission Date: 20120928
  Serious: Yes (Hospitalization, Other)
  Sender: FDA-Public Use
  Company Number: US-ROCHE-690792

PATIENT
  Sex: Female
  Weight: 105.7 kg

DRUGS (15)
  1. INSULIN LISPRO [Concomitant]
     Dosage: TDD: SCALED
  2. FLUOXETINE HCL [Concomitant]
  3. FUROSEMIDE [Concomitant]
  4. LEVEMIR [Concomitant]
     Dosage: TDD: 70 UNITS
  5. SPIRIVA [Concomitant]
  6. OXYCODONE HCL [Concomitant]
     Dosage: PATIENT RECEIVED 20 MG OXYCODONE IN SUSTAINED RELEASE FORM.
  7. SIMVASTATIN [Concomitant]
  8. GLIPIZIDE [Concomitant]
  9. ESCITALOPRAM [Concomitant]
  10. FUROSEMIDE [Concomitant]
  11. LEVOTHYROXINE SODIUM [Concomitant]
  12. GABAPENTIN [Concomitant]
  13. JANUVIA [Concomitant]
  14. ZELBORAF [Suspect]
     Indication: METASTATIC MALIGNANT MELANOMA
     Dosage: PERMANENTLY DISCONTINUED.  LAST DOSE PRIOR TO SAE WAS GIVEN ON: 03/MAR/2010.
     Route: 048
     Dates: start: 20100216, end: 20100726
  15. ESZOPICLONE [Concomitant]

REACTIONS (3)
  - CELLULITIS [None]
  - SQUAMOUS CELL CARCINOMA OF SKIN [None]
  - SQUAMOUS CELL CARCINOMA [None]
